FAERS Safety Report 4265038-6 (Version None)
Quarter: 2004Q1

REPORT INFORMATION
  Report Type: 
  Country: None (occurrence: None)
  Receive Date: 20040105
  Receipt Date: 20031218
  Transmission Date: 20041129
  Serious: Yes (Hospitalization)
  Sender: FDA-Public Use
  Company Number: 2003EU007376

PATIENT
  Age: 37 Year
  Sex: Female

DRUGS (1)
  1. PROGRAF [Suspect]
     Indication: LUNG TRANSPLANT
     Dosage: 7 MG, UNKNOWN/D, ORAL
     Route: 048
     Dates: start: 20030925, end: 20031210

REACTIONS (2)
  - DIABETIC KETOACIDOTIC HYPERGLYCAEMIC COMA [None]
  - PANCREATITIS ACUTE [None]
